FAERS Safety Report 23032382 (Version 2)
Quarter: 2023Q4

REPORT INFORMATION
  Report Type: Spontaneous
  Country: GB (occurrence: GB)
  Receive Date: 20231005
  Receipt Date: 20231019
  Transmission Date: 20240109
  Serious: Yes (Other)
  Sender: FDA-Public Use
  Company Number: GB-MHRA-MED-202309291838570880-FDBMT

PATIENT
  Age: 49 Year
  Sex: Female
  Weight: 60 kg

DRUGS (1)
  1. ARIPIPRAZOLE [Suspect]
     Active Substance: ARIPIPRAZOLE
     Indication: Product used for unknown indication
     Dosage: UNK
     Route: 065

REACTIONS (16)
  - Headache [Not Recovered/Not Resolved]
  - Chest pain [Unknown]
  - Dizziness [Unknown]
  - Pruritus [Unknown]
  - Tremor [Unknown]
  - Somnolence [Unknown]
  - Nightmare [Unknown]
  - Choking [Unknown]
  - Kwashiorkor [Unknown]
  - Ageusia [Unknown]
  - Visual impairment [Unknown]
  - Wheezing [Unknown]
  - Yellow skin [Unknown]
  - Swelling face [Unknown]
  - Heart rate abnormal [Unknown]
  - Medication error [Unknown]

NARRATIVE: CASE EVENT DATE: 20230905
